FAERS Safety Report 25229372 (Version 3)
Quarter: 2025Q2

REPORT INFORMATION
  Report Type: Report from Study
  Country: US (occurrence: US)
  Receive Date: 20250423
  Receipt Date: 20250618
  Transmission Date: 20250717
  Serious: No
  Sender: SUNOVION
  Company Number: US-SUMITOMO PHARMA SWITZERLAND GMBH-2025SPA003788

PATIENT

DRUGS (13)
  1. ORGOVYX [Suspect]
     Active Substance: RELUGOLIX
     Indication: Prostate cancer
     Dosage: 120 MG, QD
     Route: 048
     Dates: start: 20250323
  2. ATORVASTATIN [Concomitant]
     Active Substance: ATORVASTATIN
     Route: 065
  3. ASPIRIN [Concomitant]
     Active Substance: ASPIRIN
     Route: 065
  4. ESCITALOPRAM [Concomitant]
     Active Substance: ESCITALOPRAM OXALATE
     Route: 065
  5. FAMOTIDINE [Concomitant]
     Active Substance: FAMOTIDINE
     Route: 065
  6. LANSOPRAZOLE [Concomitant]
     Active Substance: LANSOPRAZOLE
     Route: 065
  7. MELATONIN [Concomitant]
     Active Substance: MELATONIN
     Route: 065
  8. METOPROLOL TARTRATE [Concomitant]
     Active Substance: METOPROLOL TARTRATE
     Route: 065
  9. MIDODRINE HYDROCHLORIDE [Concomitant]
     Active Substance: MIDODRINE HYDROCHLORIDE
     Route: 065
  10. MONTELUKAST [Concomitant]
     Active Substance: MONTELUKAST
     Route: 065
  11. TRAZODONE HCL [Concomitant]
     Active Substance: TRAZODONE HYDROCHLORIDE
     Route: 065
  12. TYLENOL [Concomitant]
     Active Substance: ACETAMINOPHEN
     Route: 065
  13. VITAMIN B12 [Concomitant]
     Active Substance: CYANOCOBALAMIN
     Route: 065

REACTIONS (5)
  - Nervousness [Unknown]
  - Anxiety [Unknown]
  - Increased appetite [Unknown]
  - Hot flush [Unknown]
  - Incorrect dose administered [Unknown]
